FAERS Safety Report 7903424 (Version 2)
Quarter: 2014Q3

REPORT INFORMATION
  Report Type: Spontaneous
  Country: US (occurrence: US)
  Receive Date: 20110418
  Receipt Date: 20140812
  Transmission Date: 20150326
  Serious: Yes (Other)
  Sender: FDA-Public Use
  Company Number: US-ASTRAZENECA-2011SE20347

PATIENT
  Age: 58 Year
  Sex: Male

DRUGS (1)
  1. CRESTOR [Suspect]
     Active Substance: ROSUVASTATIN CALCIUM
     Route: 048

REACTIONS (8)
  - Road traffic accident [Unknown]
  - Elbow deformity [Unknown]
  - Foot fracture [Unknown]
  - Upper limb fracture [Unknown]
  - Back pain [Unknown]
  - Balance disorder [Unknown]
  - Nerve injury [Unknown]
  - Pain in extremity [Unknown]
